FAERS Safety Report 10235566 (Version 1)
Quarter: 2014Q2

REPORT INFORMATION
  Report Type: Spontaneous
  Country: US (occurrence: US)
  Receive Date: 20140613
  Receipt Date: 20140613
  Transmission Date: 20141212
  Serious: Yes (Hospitalization, Other)
  Sender: FDA-Public Use
  Company Number: US-B.I. PHARMACEUTICALS,INC./RIDGEFIELD-2014-BI-25733BP

PATIENT
  Sex: Female

DRUGS (6)
  1. COMBIVENT [Suspect]
     Indication: CHRONIC OBSTRUCTIVE PULMONARY DISEASE
     Dosage: DOSE PER APPLICATION: 18 MCG / 103 MCG; DAILY DOSE: 144 MCG / 824 MCG
     Route: 055
     Dates: end: 2012
  2. COMBIVENT [Suspect]
     Indication: CHRONIC OBSTRUCTIVE PULMONARY DISEASE
     Dosage: DOSE  PER APPLICATION: 20 MCG / 100 MCG; DAILY DOSE: 80 MCG/ 400 MCG
     Route: 055
     Dates: start: 2012
  3. PROAIR [Concomitant]
     Route: 055
  4. SYMBICORT [Concomitant]
     Route: 055
  5. DALIRESP [Concomitant]
     Route: 055
  6. MORPHINE [Concomitant]
     Indication: PAIN
     Route: 048

REACTIONS (3)
  - Malignant melanoma [Not Recovered/Not Resolved]
  - Ureteric obstruction [Recovered/Resolved]
  - Drug ineffective [Not Recovered/Not Resolved]
